FAERS Safety Report 4873691-9 (Version None)
Quarter: 2006Q1

REPORT INFORMATION
  Report Type: 
  Country: None (occurrence: None)
  Receive Date: 20060104
  Receipt Date: 20060104
  Transmission Date: 20060701
  Serious: Yes (Life-Threatening)
  Sender: FDA-Public Use
  Company Number: None

PATIENT
  Age: 40 Year
  Sex: Female

DRUGS (1)
  1. LEXAPRO [Suspect]
     Dosage: X1
     Dates: start: 20041211

REACTIONS (3)
  - INTENTIONAL OVERDOSE [None]
  - POLYSUBSTANCE ABUSE [None]
  - SUICIDAL IDEATION [None]
